FAERS Safety Report 7531079-6 (Version None)
Quarter: 2011Q2

REPORT INFORMATION
  Report Type: 
  Country: None (occurrence: None)
  Receive Date: 20110531
  Receipt Date: 20110517
  Transmission Date: 20111010
  Serious: Yes (Other)
  Sender: FDA-Public Use
  Company Number: 1000020342

PATIENT
  Age: 75 Year
  Sex: Male

DRUGS (3)
  1. SYMBICORT FORTE (BUDESONIDE [Concomitant]
  2. ROFLUMILAST (ROFLUMILAST) (TABLETS) [Suspect]
     Indication: CHRONIC OBSTRUCTIVE PULMONARY DISEASE
     Dosage: 500 MCG (500 MCG, 1 IN 1
     Dates: start: 20110407, end: 20110408
  3. CIPROFLOXACIN [Concomitant]

REACTIONS (2)
  - DYSPNOEA [None]
  - VENTRICULAR EXTRASYSTOLES [None]
